FAERS Safety Report 20769954 (Version 4)
Quarter: 2024Q1

REPORT INFORMATION
  Report Type: Report from Study
  Country: GB (occurrence: GB)
  Receive Date: 20220429
  Receipt Date: 20240102
  Transmission Date: 20240410
  Serious: Yes (Hospitalization, Other)
  Sender: FDA-Public Use
  Company Number: DE-TAKEDA-DE201824376

PATIENT
  Age: 13 Year
  Sex: Male
  Weight: 47 kg

DRUGS (9)
  1. ADVATE [Suspect]
     Active Substance: ANTIHEMOPHILIC FACTOR, HUMAN RECOMBINANT
     Indication: Factor VIII deficiency
     Dosage: UNK
     Route: 042
     Dates: start: 20150313
  2. ADVATE [Suspect]
     Active Substance: ANTIHEMOPHILIC FACTOR, HUMAN RECOMBINANT
     Indication: Factor VIII deficiency
     Dosage: UNK
     Route: 042
     Dates: start: 20150313
  3. ADVATE [Suspect]
     Active Substance: ANTIHEMOPHILIC FACTOR, HUMAN RECOMBINANT
     Indication: Factor VIII deficiency
     Dosage: UNK
     Route: 042
     Dates: start: 20150313
  4. ADVATE [Suspect]
     Active Substance: ANTIHEMOPHILIC FACTOR, HUMAN RECOMBINANT
     Indication: Prophylaxis
     Dosage: 2000 INTERNATIONAL UNIT, Q2WEEKS
     Route: 042
  5. ADVATE [Suspect]
     Active Substance: ANTIHEMOPHILIC FACTOR, HUMAN RECOMBINANT
     Indication: Prophylaxis
     Dosage: 2000 INTERNATIONAL UNIT, Q2WEEKS
     Route: 042
  6. ADVATE [Suspect]
     Active Substance: ANTIHEMOPHILIC FACTOR, HUMAN RECOMBINANT
     Indication: Prophylaxis
     Dosage: 2000 INTERNATIONAL UNIT, Q2WEEKS
     Route: 042
  7. AMITRIPTYLINE [Concomitant]
     Active Substance: AMITRIPTYLINE
     Indication: Complex regional pain syndrome
     Dosage: 10 MILLIGRAM, QD
     Route: 065
     Dates: start: 20151120, end: 20151127
  8. COCODAMOL [Concomitant]
     Active Substance: ACETAMINOPHEN\CODEINE PHOSPHATE
     Indication: Complex regional pain syndrome
     Dosage: 2 DOSAGE FORM, QID
     Route: 065
     Dates: start: 20151111, end: 20151120
  9. TRANEXAMIC ACID [Concomitant]
     Active Substance: TRANEXAMIC ACID
     Indication: Haemorrhage prophylaxis
     Dosage: 1 GRAM
     Route: 065
     Dates: start: 20150313

REACTIONS (1)
  - Muscle haemorrhage [Recovered/Resolved]

NARRATIVE: CASE EVENT DATE: 20180627
